FAERS Safety Report 17484709 (Version 1)
Quarter: 2020Q1

REPORT INFORMATION
  Report Type: Spontaneous
  Country: PL (occurrence: PL)
  Receive Date: 20200302
  Receipt Date: 20200302
  Transmission Date: 20200409
  Serious: Yes (Death)
  Sender: FDA-Public Use
  Company Number: PL-MYLANLABS-2020M1021898

PATIENT
  Age: 55 Year
  Sex: Female

DRUGS (9)
  1. LOPERAMIDE [Concomitant]
     Active Substance: LOPERAMIDE
     Indication: DIARRHOEA
     Dates: start: 2018
  2. PANITUMUMAB [Suspect]
     Active Substance: PANITUMUMAB
     Indication: RECTAL CANCER
     Dates: start: 201802, end: 201901
  3. DOXYCYCLINE. [Concomitant]
     Active Substance: DOXYCYCLINE
     Dosage: 2 X 100 MG
     Route: 048
     Dates: start: 2018
  4. MORPHINE [Suspect]
     Active Substance: MORPHINE
     Indication: DIARRHOEA
     Dates: start: 2018
  5. RACECADOTRIL [Concomitant]
     Active Substance: RACECADOTRIL
     Indication: DIARRHOEA
     Dates: start: 2018
  6. FOLINIC ACID [Suspect]
     Active Substance: LEUCOVORIN
     Indication: RECTAL CANCER
     Dosage: FOLFOX
     Dates: start: 201802, end: 201901
  7. FLUOROURACIL. [Suspect]
     Active Substance: FLUOROURACIL
     Indication: RECTAL CANCER
     Dosage: FOLFOX
     Dates: start: 201802, end: 201901
  8. OXALIPLATIN. [Suspect]
     Active Substance: OXALIPLATIN
     Indication: RECTAL CANCER
     Dosage: FOLFOX
     Dates: start: 201802, end: 201901
  9. UREA. [Concomitant]
     Active Substance: UREA
     Route: 061

REACTIONS (5)
  - Skin atrophy [Fatal]
  - Neutropenia [Fatal]
  - Off label use [Fatal]
  - Polyneuropathy [Fatal]
  - Short-bowel syndrome [Fatal]

NARRATIVE: CASE EVENT DATE: 2018
